FAERS Safety Report 25282530 (Version 1)
Quarter: 2025Q2

REPORT INFORMATION
  Report Type: Spontaneous
  Country: US (occurrence: None)
  Receive Date: 20250507
  Receipt Date: 20250507
  Transmission Date: 20250717
  Serious: Yes (Hospitalization)
  Sender: FDA-CTU
  Company Number: None

PATIENT
  Age: 66 Year
  Sex: Male
  Weight: 48 kg

DRUGS (9)
  1. XOLAIR [Suspect]
     Active Substance: OMALIZUMAB
     Indication: Asthma
     Dosage: OTHER QUANTITY : 300/2 MG.ML;?FREQUENCY : MONTHLY;?
     Route: 058
     Dates: start: 20250224
  2. JARDIANCE [Concomitant]
     Active Substance: EMPAGLIFLOZIN
  3. METOPROLOL [Concomitant]
     Active Substance: METOPROLOL
  4. Multivitamin 50+ [Concomitant]
  5. SINGULAIR [Concomitant]
     Active Substance: MONTELUKAST SODIUM
  6. TRELEGY ELLIPTA [Concomitant]
     Active Substance: FLUTICASONE FUROATE\UMECLIDINIUM BROMIDE\VILANTEROL TRIFENATATE
  7. ALBUTEROL [Suspect]
     Active Substance: ALBUTEROL
  8. ALBUTEROL [Concomitant]
     Active Substance: ALBUTEROL
  9. EPINEPHRINE [Concomitant]
     Active Substance: EPINEPHRINE

REACTIONS (3)
  - Nasopharyngitis [None]
  - Asthma [None]
  - Asthma [None]
